FAERS Safety Report 20826927 (Version 2)
Quarter: 2022Q4

REPORT INFORMATION
  Report Type: Report from Study
  Country: CN (occurrence: CN)
  Receive Date: 20220513
  Receipt Date: 20221108
  Transmission Date: 20230113
  Serious: Yes (Hospitalization)
  Sender: FDA-Public Use
  Company Number: CN-Merck Healthcare KGaA-9320083

PATIENT
  Age: 60 Year
  Sex: Female
  Weight: 43 kg

DRUGS (17)
  1. CETUXIMAB [Suspect]
     Active Substance: CETUXIMAB
     Indication: Colorectal cancer metastatic
     Dosage: 536 MG, UNKNOWN
     Route: 041
     Dates: start: 20220218
  2. CETUXIMAB [Suspect]
     Active Substance: CETUXIMAB
     Dosage: 335 MG, UNKNOWN
     Route: 041
     Dates: start: 20220415, end: 20220415
  3. CETUXIMAB [Suspect]
     Active Substance: CETUXIMAB
     Dosage: 335 MG, UNKNOWN
     Route: 041
     Dates: start: 20220429
  4. CETUXIMAB [Suspect]
     Active Substance: CETUXIMAB
     Dosage: 335 MG, UNKNOWN
     Route: 041
     Dates: start: 20220616
  5. CETUXIMAB [Suspect]
     Active Substance: CETUXIMAB
     Dosage: 328 MG, UNKNOWN
     Route: 041
     Dates: start: 20221021
  6. OXALIPLATIN [Concomitant]
     Active Substance: OXALIPLATIN
     Indication: Colorectal cancer metastatic
     Dosage: 114 MG, UNKNOWN
     Route: 041
     Dates: start: 20220218
  7. OXALIPLATIN [Concomitant]
     Active Substance: OXALIPLATIN
     Dosage: 114 MG, UNKNOWN
     Route: 041
     Dates: start: 20220415
  8. OXALIPLATIN [Concomitant]
     Active Substance: OXALIPLATIN
     Dosage: ACTUAL TOTAL DOSE WAS 94 MG.
     Route: 041
     Dates: start: 20220429
  9. OXALIPLATIN [Concomitant]
     Active Substance: OXALIPLATIN
     Dosage: 79 MG, UNKNOWN
     Route: 041
     Dates: start: 20221021
  10. LEUCOVORIN CALCIUM [Concomitant]
     Active Substance: LEUCOVORIN CALCIUM
     Indication: Colorectal cancer metastatic
     Dosage: 536 MG, UNKNOWN
     Route: 041
     Dates: start: 20220218
  11. LEUCOVORIN CALCIUM [Concomitant]
     Active Substance: LEUCOVORIN CALCIUM
     Dosage: 536 MG, UNKNOWN
     Route: 041
     Dates: start: 20220415
  12. LEUCOVORIN CALCIUM [Concomitant]
     Active Substance: LEUCOVORIN CALCIUM
     Dosage: UNK, UNKNOWN
     Route: 041
     Dates: start: 20220429
  13. LEUCOVORIN CALCIUM [Concomitant]
     Active Substance: LEUCOVORIN CALCIUM
     Dosage: 524 MG, UNKNOWN
     Route: 041
     Dates: start: 20221021
  14. FLUOROURACIL [Concomitant]
     Active Substance: FLUOROURACIL
     Indication: Colorectal cancer metastatic
     Dosage: 3752 MG, UNKNOWN
     Route: 041
     Dates: start: 20220218
  15. FLUOROURACIL [Concomitant]
     Active Substance: FLUOROURACIL
     Dosage: 3752 MG, UNKNOWN
     Route: 041
     Dates: start: 20220415
  16. FLUOROURACIL [Concomitant]
     Active Substance: FLUOROURACIL
     Dosage: THE ACTUAL TOTAL DOSE WAS 2680 MG. DOSE WAS REDUCED
     Route: 041
     Dates: start: 20220429
  17. FLUOROURACIL [Concomitant]
     Active Substance: FLUOROURACIL
     Dosage: 2620 MG, DAILY
     Route: 041
     Dates: start: 20221021

REACTIONS (3)
  - Platelet count decreased [Recovered/Resolved]
  - White blood cell count decreased [Recovered/Resolved]
  - Neutrophil count decreased [Recovered/Resolved]

NARRATIVE: CASE EVENT DATE: 20220422
